FAERS Safety Report 4764019-3 (Version None)
Quarter: 2005Q3

REPORT INFORMATION
  Report Type: 
  Country: None (occurrence: None)
  Receive Date: 20050906
  Receipt Date: 20050823
  Transmission Date: 20060218
  Serious: Yes (Other)
  Sender: FDA-Public Use
  Company Number: 2005119660

PATIENT
  Age: 18 Year
  Sex: Male
  Weight: 68.9467 kg

DRUGS (3)
  1. ZOLOFT [Suspect]
     Indication: ANXIETY DISORDER
     Dosage: 200 MG (100 MG, 1 IN 1 D), ORAL
     Route: 048
  2. ZOLOFT [Suspect]
     Indication: SOCIAL PHOBIA
     Dosage: 200 MG (100 MG, 1 IN 1 D), ORAL
     Route: 048
  3. SEROQUEL [Concomitant]

REACTIONS (5)
  - AUTOIMMUNE THYROIDITIS [None]
  - BLOOD PROLACTIN INCREASED [None]
  - HYPERPROLACTINAEMIA [None]
  - HYPERTHYROIDISM [None]
  - TRI-IODOTHYRONINE FREE DECREASED [None]
